FAERS Safety Report 8137456-7 (Version None)
Quarter: 2012Q1

REPORT INFORMATION
  Report Type: 
  Country: None (occurrence: None)
  Receive Date: 20120213
  Receipt Date: 20120201
  Transmission Date: 20120608
  Serious: Yes (Hospitalization, Other)
  Sender: FDA-Public Use
  Company Number: 2012SP006318

PATIENT
  Sex: Female

DRUGS (1)
  1. MIRALAX [Suspect]
     Indication: COLONOSCOPY
     Dosage: PO
     Route: 048
     Dates: start: 20120101

REACTIONS (7)
  - BLOOD SODIUM DECREASED [None]
  - VOMITING [None]
  - DEHYDRATION [None]
  - BLOOD MAGNESIUM DECREASED [None]
  - URINARY TRACT INFECTION [None]
  - NAUSEA [None]
  - DIZZINESS [None]
